FAERS Safety Report 8849693 (Version 1)
Quarter: 2012Q4

REPORT INFORMATION
  Report Type: 
  Country: US (occurrence: US)
  Receive Date: 20121019
  Receipt Date: 20121019
  Transmission Date: 20130627
  Serious: Yes (Congenital Anomaly, Other)
  Sender: FDA-Public Use
  Company Number: PHHY2012US093626

PATIENT
  Sex: Male
  Weight: 2.23 kg

DRUGS (1)
  1. EXJADE [Suspect]
     Dosage: 1500 mg, daily, mother dose
     Route: 064
     Dates: start: 20071116, end: 20111019

REACTIONS (4)
  - Hypospadias [Unknown]
  - Inguinal hernia [Unknown]
  - Low birth weight baby [Unknown]
  - Foetal exposure during pregnancy [Unknown]
